FAERS Safety Report 7539673-3 (Version None)
Quarter: 2011Q2

REPORT INFORMATION
  Report Type: 
  Country: None (occurrence: None)
  Receive Date: 20110610
  Receipt Date: 20110609
  Transmission Date: 20111010
  Serious: Yes (Other)
  Sender: FDA-Public Use
  Company Number: US-B.I. PHARMACEUTICALS,INC./RIDGEFIELD-2011-BP-13578BP

PATIENT
  Age: 51 Year
  Sex: Female
  Weight: 136.08 kg

DRUGS (5)
  1. LORTAB [Concomitant]
     Indication: HYPERTENSION
  2. OXYGEN [Concomitant]
     Indication: CHRONIC OBSTRUCTIVE PULMONARY DISEASE
  3. SPIRIVA [Suspect]
     Indication: CHRONIC OBSTRUCTIVE PULMONARY DISEASE
     Dosage: 18 MCG
     Route: 055
     Dates: start: 20110301
  4. XANAX [Concomitant]
     Indication: ANXIETY
  5. PAXIL [Concomitant]
     Indication: DEPRESSION
     Dates: start: 20060101

REACTIONS (6)
  - PARAESTHESIA ORAL [None]
  - TRANSIENT ISCHAEMIC ATTACK [None]
  - PARAESTHESIA [None]
  - HYPOAESTHESIA ORAL [None]
  - HYPOAESTHESIA [None]
  - BLOOD CHOLESTEROL INCREASED [None]
